FAERS Safety Report 6601393-7 (Version None)
Quarter: 2010Q1

REPORT INFORMATION
  Report Type: 
  Country: None (occurrence: None)
  Receive Date: 20100225
  Receipt Date: 20100215
  Transmission Date: 20100710
  Serious: No
  Sender: FDA-Public Use
  Company Number: NL-EISAI INC.-E3810-03535-SPO-NL

PATIENT
  Age: 56 Year
  Sex: Female
  Weight: 101 kg

DRUGS (9)
  1. PARIET (RABEPRAZOLE) [Suspect]
     Route: 048
     Dates: end: 20091123
  2. PARIET (RABEPRAZOLE) [Suspect]
     Route: 048
     Dates: start: 20091221
  3. BYETTA [Interacting]
     Indication: DIABETES MELLITUS
     Dates: start: 20091005, end: 20091105
  4. CRESTOR [Concomitant]
     Route: 048
     Dates: start: 20081118
  5. COVERSYL PLUS [Concomitant]
     Route: 048
     Dates: start: 20081118
  6. ATENOLOL [Concomitant]
     Route: 048
  7. GLIBENCLAMIDE [Concomitant]
     Route: 048
  8. METFORMIN HCL [Concomitant]
     Route: 048
  9. MARCUMAR [Concomitant]
     Route: 048

REACTIONS (3)
  - DRUG INTERACTION [None]
  - HYPOCALCAEMIA [None]
  - HYPOMAGNESAEMIA [None]
